FAERS Safety Report 6129437-X (Version None)
Quarter: 2009Q1

REPORT INFORMATION
  Report Type: 
  Country: None (occurrence: None)
  Receive Date: 20090323
  Receipt Date: 20090323
  Transmission Date: 20090719
  Serious: No
  Sender: FDA-Public Use
  Company Number: None

PATIENT
  Age: 195 Month
  Weight: 51.2565 kg

DRUGS (1)
  1. SYMBICORT [Suspect]
     Indication: ASTHMA
     Dosage: 160/45 BID PO
     Route: 048
     Dates: start: 20090115, end: 20090311

REACTIONS (4)
  - CANDIDIASIS [None]
  - OROPHARYNGEAL BLISTERING [None]
  - OSTEOARTHRITIS [None]
  - OSTEONECROSIS [None]
